FAERS Safety Report 8454849-9 (Version None)
Quarter: 2012Q2

REPORT INFORMATION
  Report Type: 
  Country: None (occurrence: None)
  Receive Date: 20120621
  Receipt Date: 20120612
  Transmission Date: 20120825
  Serious: Yes (Other)
  Sender: FDA-Public Use
  Company Number: US-JNJFOC-20120517698

PATIENT
  Sex: Male
  Weight: 102.06 kg

DRUGS (8)
  1. ENALAPRIL MALEATE [Concomitant]
     Indication: HYPERTENSION
     Route: 048
     Dates: start: 20070827
  2. LIPITOR [Concomitant]
     Indication: BLOOD CHOLESTEROL
     Route: 048
     Dates: start: 20070827
  3. ATENOLOL [Concomitant]
     Indication: HEART RATE
     Route: 048
     Dates: start: 20070827
  4. LIPITOR [Concomitant]
     Indication: LIPIDS
     Route: 048
     Dates: start: 20070827
  5. ASPIRIN [Concomitant]
     Route: 048
     Dates: start: 20070827
  6. ATENOLOL [Concomitant]
     Indication: ATRIAL FIBRILLATION
     Route: 048
     Dates: start: 20070827
  7. XARELTO [Suspect]
     Indication: ATRIAL FIBRILLATION
     Route: 048
     Dates: start: 20120301, end: 20120501
  8. LOVAZA [Concomitant]
     Indication: BLOOD TRIGLYCERIDES

REACTIONS (8)
  - HYPOKINESIA [None]
  - ARTHRALGIA [None]
  - LIMB INJURY [None]
  - EPISTAXIS [None]
  - OEDEMA PERIPHERAL [None]
  - TENDON INJURY [None]
  - HAEMORRHAGE [None]
  - CONTUSION [None]
